FAERS Safety Report 18272744 (Version 2)
Quarter: 2020Q3

REPORT INFORMATION
  Report Type: Spontaneous
  Country: AU (occurrence: AU)
  Receive Date: 20200916
  Receipt Date: 20200922
  Transmission Date: 20201103
  Serious: Yes (Hospitalization, Other)
  Sender: FDA-Public Use
  Company Number: AU-PFIZER INC-2020353343

PATIENT
  Age: 79 Year
  Sex: Male

DRUGS (5)
  1. CIPROFLOXACIN. [Concomitant]
     Active Substance: CIPROFLOXACIN
     Dosage: 400 MG, 2X/DAY (Q12H, POSTOPERATIVE DAY 23 TO DISCHARGE FROM HOSPITAL)
     Dates: start: 201906
  2. MEROPENEM. [Suspect]
     Active Substance: MEROPENEM
     Indication: SERRATIA INFECTION
     Dosage: 1 G, 3X/DAY ,(Q8H, POSTOPERATIVE DAY 10?18)
     Dates: start: 201906, end: 201906
  3. METRONIDAZOLE. [Concomitant]
     Active Substance: METRONIDAZOLE
     Dosage: 500 MG, 2X/DAY ,(Q12H, POSTOPERATIVE DAY 23?38)
  4. MEROPENEM. [Suspect]
     Active Substance: MEROPENEM
     Indication: SEPSIS
     Dosage: 1 G, 3X/DAY ,(Q8H, POSTOPERATIVE DAY 21?23)
     Dates: start: 201906, end: 201907
  5. VANCOMYCIN [Concomitant]
     Active Substance: VANCOMYCIN
     Dosage: POSTOPERATIVE DAY 10?15

REACTIONS (1)
  - Vanishing bile duct syndrome [Recovered/Resolved]

NARRATIVE: CASE EVENT DATE: 201906
